FAERS Safety Report 6341753-5 (Version None)
Quarter: 2009Q3

REPORT INFORMATION
  Report Type: 
  Country: None (occurrence: None)
  Receive Date: 20090904
  Receipt Date: 20090827
  Transmission Date: 20100115
  Serious: Yes (Hospitalization)
  Sender: FDA-Public Use
  Company Number: PHHY2009US36413

PATIENT
  Sex: Female

DRUGS (3)
  1. ERL 080A ERL+TAB [Suspect]
     Indication: IMMUNOSUPPRESSION
     Dosage: 1440 MG/DAY
     Route: 048
     Dates: start: 20071002
  2. PROGRAF [Concomitant]
     Indication: IMMUNOSUPPRESSION
     Dosage: 11 MG
     Dates: start: 20071001
  3. PREDNISONE TAB [Concomitant]
     Indication: IMMUNOSUPPRESSION
     Dosage: 5 MG/DAY

REACTIONS (8)
  - ABDOMINAL PAIN [None]
  - DIARRHOEA [None]
  - DYSURIA [None]
  - ESCHERICHIA INFECTION [None]
  - NAUSEA [None]
  - POLLAKIURIA [None]
  - PYELONEPHRITIS [None]
  - URINARY TRACT INFECTION [None]
